FAERS Safety Report 14947476 (Version 1)
Quarter: 2018Q2

REPORT INFORMATION
  Report Type: Spontaneous
  Country: FR (occurrence: FR)
  Receive Date: 20180529
  Receipt Date: 20180529
  Transmission Date: 20180711
  Serious: Yes (Other)
  Sender: FDA-Public Use
  Company Number: FR-PFIZER INC-2018210486

PATIENT
  Age: 51 Year
  Sex: Male
  Weight: 76 kg

DRUGS (3)
  1. DAUNORUBICINE [Concomitant]
     Active Substance: DAUNORUBICIN
  2. VINCRISTINE SULFATE. [Suspect]
     Active Substance: VINCRISTINE SULFATE
     Indication: ACUTE LYMPHOCYTIC LEUKAEMIA
     Dosage: 2 MG, CYCLIC
     Route: 042
     Dates: start: 20170919, end: 20170930
  3. CORTANCYL [Concomitant]
     Active Substance: PREDNISONE

REACTIONS (1)
  - Neuropathy peripheral [Not Recovered/Not Resolved]

NARRATIVE: CASE EVENT DATE: 20170925
